FAERS Safety Report 10013477 (Version 1)
Quarter: 2014Q1

REPORT INFORMATION
  Report Type: Spontaneous
  Country: BR (occurrence: BR)
  Receive Date: 20140314
  Receipt Date: 20140314
  Transmission Date: 20141002
  Serious: Yes (Hospitalization)
  Sender: FDA-Public Use
  Company Number: BR-ASTRAZENECA-2014SE17289

PATIENT
  Age: 32193 Day
  Sex: Male
  Weight: 60 kg

DRUGS (2)
  1. BRILINTA [Suspect]
     Indication: MYOCARDIAL INFARCTION
     Route: 048
     Dates: start: 2012
  2. UNSPECIFIED [Concomitant]

REACTIONS (1)
  - Coronary artery occlusion [Recovered/Resolved]
